FAERS Safety Report 9469743 (Version 1)
Quarter: 2013Q3

REPORT INFORMATION
  Report Type: Spontaneous
  Country: AU (occurrence: AU)
  Receive Date: 20130822
  Receipt Date: 20130822
  Transmission Date: 20140515
  Serious: Yes (Other)
  Sender: FDA-Public Use
  Company Number: PHHY2013AU090521

PATIENT
  Sex: Female

DRUGS (8)
  1. ACLASTA [Suspect]
     Dosage: UNK
     Route: 042
  2. METOPROLOL [Suspect]
     Dosage: UNK UKN, UNK
  3. ASTRIX 100 [Concomitant]
     Dosage: UNK
  4. CALTRATE [Concomitant]
     Dosage: UNK
  5. ELOCON [Concomitant]
     Dosage: UNK
  6. ESCITALOPRAM [Concomitant]
     Dosage: UNK
  7. PERINDOPRIL [Concomitant]
     Dosage: UNK
  8. PANADOL OSTEO [Concomitant]
     Dosage: UNK

REACTIONS (7)
  - Dysphonia [Unknown]
  - Glaucoma [Unknown]
  - Hypercholesterolaemia [Unknown]
  - Osteoporosis [Unknown]
  - Insomnia [Unknown]
  - Pain [Unknown]
  - Hypertension [Unknown]
